FAERS Safety Report 23243585 (Version 1)
Quarter: 2023Q4

REPORT INFORMATION
  Report Type: Report from Study
  Country: US (occurrence: US)
  Receive Date: 20231130
  Receipt Date: 20231130
  Transmission Date: 20240110
  Serious: Yes (Other)
  Sender: FDA-Public Use
  Company Number: US-ALXN-A202207785AA

PATIENT
  Age: 66 Year
  Sex: Female

DRUGS (1)
  1. STRENSIQ [Suspect]
     Active Substance: ASFOTASE ALFA
     Indication: Hypophosphatasia
     Dosage: UNK
     Route: 065

REACTIONS (9)
  - Spinal compression fracture [Not Recovered/Not Resolved]
  - Spinal cord compression [Not Recovered/Not Resolved]
  - Spinal pain [Not Recovered/Not Resolved]
  - Feeling abnormal [Unknown]
  - Pain in extremity [Unknown]
  - Product temperature excursion issue [Unknown]
  - Bone disorder [Unknown]
  - Back pain [Unknown]
  - Confusional state [Unknown]

NARRATIVE: CASE EVENT DATE: 20220601
